FAERS Safety Report 22605644 (Version 1)
Quarter: 2023Q2

REPORT INFORMATION
  Report Type: Spontaneous
  Country: FR (occurrence: FR)
  Receive Date: 20230615
  Receipt Date: 20230615
  Transmission Date: 20230721
  Serious: Yes (Life-Threatening, Hospitalization, Other)
  Sender: FDA-Public Use
  Company Number: None

PATIENT
  Age: 45 Year
  Sex: Female
  Weight: 119 kg

DRUGS (13)
  1. MEROPENEM [Suspect]
     Active Substance: MEROPENEM
     Indication: Infection
     Dosage: EVERY 8 HOURS
     Route: 042
     Dates: start: 20181126, end: 20181228
  2. MEROPENEM [Suspect]
     Active Substance: MEROPENEM
     Indication: Meningitis meningococcal
     Dosage: 2 G, 2X/DAY
     Route: 042
     Dates: start: 20181229, end: 20190106
  3. FOSFOMYCIN [Suspect]
     Active Substance: FOSFOMYCIN
     Indication: Infection
     Dosage: 4 G, 4X/DAY
     Route: 042
     Dates: start: 20181229, end: 20190101
  4. FOSFOMYCIN [Suspect]
     Active Substance: FOSFOMYCIN
     Indication: Meningitis meningococcal
     Dosage: 4 G, 2X/DAY
     Route: 042
     Dates: start: 20190102, end: 20190107
  5. FOSFOMYCIN [Suspect]
     Active Substance: FOSFOMYCIN
     Dosage: 4 G, 4X/DAY
     Route: 042
     Dates: start: 20190108, end: 20190108
  6. COLISTIN [Concomitant]
     Active Substance: COLISTIN
     Dosage: UNK
  7. FILGRASTIM [Concomitant]
     Active Substance: FILGRASTIM
     Dosage: 48 MUI
     Dates: start: 20190105
  8. PANTOPRAZOLE [Concomitant]
     Active Substance: PANTOPRAZOLE
     Indication: Prophylaxis against gastrointestinal ulcer
     Dosage: 20 MG
     Route: 048
     Dates: start: 20181116
  9. PANTOPRAZOLE [Concomitant]
     Active Substance: PANTOPRAZOLE
     Dosage: 40 MG, DAILY
     Route: 048
     Dates: start: 20181121, end: 20190101
  10. PANTOPRAZOLE [Concomitant]
     Active Substance: PANTOPRAZOLE
     Dosage: 20 MG
     Route: 048
     Dates: start: 20181020, end: 20181113
  11. AZTREONAM [Concomitant]
     Active Substance: AZTREONAM
     Dosage: UNK
     Dates: start: 20190108
  12. FERROUS SULFATE [Concomitant]
     Active Substance: FERROUS SULFATE
     Indication: Iron deficiency
     Dosage: 80 MG
     Route: 048
     Dates: start: 20181121, end: 20190102
  13. VANCOMYCIN [Concomitant]
     Active Substance: VANCOMYCIN
     Indication: Meningitis meningococcal
     Dosage: UNK
     Route: 042
     Dates: start: 20181127, end: 20181218

REACTIONS (8)
  - Agranulocytosis [Recovered/Resolved]
  - Drug reaction with eosinophilia and systemic symptoms [Recovering/Resolving]
  - Pruritus [Recovering/Resolving]
  - Oedema [Recovering/Resolving]
  - Erythema [Recovering/Resolving]
  - Skin exfoliation [Recovering/Resolving]
  - Neutrophil count decreased [Unknown]
  - Eosinophilia [Unknown]

NARRATIVE: CASE EVENT DATE: 20190101
